FAERS Safety Report 6093053-9 (Version None)
Quarter: 2009Q1

REPORT INFORMATION
  Report Type: 
  Country: None (occurrence: None)
  Receive Date: 20090224
  Receipt Date: 20090217
  Transmission Date: 20090719
  Serious: Yes (Other)
  Sender: FDA-Public Use
  Company Number: 178994

PATIENT
  Age: 39 Year
  Sex: Female

DRUGS (4)
  1. CARBOPLATIN [Suspect]
     Indication: MEDULLOBLASTOMA
     Dosage: 2 CYCLES
  2. THIOTEPA [Suspect]
     Indication: MEDULLOBLASTOMA
     Dosage: 2 CYCLES
  3. CHEMOTHERAPEUTICS NOS [Suspect]
     Indication: MEDULLOBLASTOMA
  4. THERAPEUTIC RADIOPHARMACEUTICALS [Suspect]
     Indication: MEDULLOBLASTOMA

REACTIONS (2)
  - BRAIN MASS [None]
  - NUCLEAR MAGNETIC RESONANCE IMAGING BRAIN ABNORMAL [None]
